FAERS Safety Report 25868993 (Version 1)
Quarter: 2025Q4

REPORT INFORMATION
  Report Type: Report from Study
  Country: AR (occurrence: AR)
  Receive Date: 20251001
  Receipt Date: 20251001
  Transmission Date: 20260118
  Serious: Yes (Hospitalization)
  Sender: JOHNSON AND JOHNSON
  Company Number: AR-JNJFOC-20250709461

PATIENT
  Age: 75 Year
  Sex: Female
  Weight: 68 kg

DRUGS (1)
  1. SIMPONI [Suspect]
     Active Substance: GOLIMUMAB
     Indication: Rheumatoid arthritis
     Route: 041
     Dates: start: 20211221

REACTIONS (2)
  - Cholelithiasis [Unknown]
  - Influenza [Not Recovered/Not Resolved]

NARRATIVE: CASE EVENT DATE: 20250625
